FAERS Safety Report 24195839 (Version 1)
Quarter: 2024Q3

REPORT INFORMATION
  Report Type: Spontaneous
  Country: US (occurrence: US)
  Receive Date: 20240809
  Receipt Date: 20240809
  Transmission Date: 20241017
  Serious: Yes (Other)
  Sender: PAREXEL
  Company Number: US-HISAMITSU PHARMACEUTICAL CO., INC.-2024-NOV-US001021

PATIENT
  Sex: Female

DRUGS (2)
  1. SECUADO [Suspect]
     Active Substance: ASENAPINE
     Indication: Schizophrenia
     Dosage: UNKNOWN, UNK
     Route: 062
  2. SECUADO [Suspect]
     Active Substance: ASENAPINE
     Indication: Psychotic disorder

REACTIONS (1)
  - Cardiac arrest [Unknown]
